FAERS Safety Report 6996390-6 (Version None)
Quarter: 2010Q3

REPORT INFORMATION
  Report Type: 
  Country: None (occurrence: None)
  Receive Date: 20100918
  Receipt Date: 20090302
  Transmission Date: 20110219
  Serious: No
  Sender: FDA-Public Use
  Company Number: US-WYE-H07968609

PATIENT
  Sex: Male
  Weight: 89.89 kg

DRUGS (5)
  1. EFFEXOR XR [Suspect]
     Indication: DEPRESSION
     Route: 048
     Dates: start: 20060101
  2. EFFEXOR XR [Suspect]
     Dosage: TITRATED UP
     Route: 048
  3. EFFEXOR XR [Suspect]
     Route: 048
     Dates: end: 20090117
  4. EFFEXOR XR [Suspect]
     Route: 048
     Dates: start: 20090112, end: 20090118
  5. EFFEXOR XR [Suspect]
     Route: 048
     Dates: start: 20090119, end: 20090125

REACTIONS (4)
  - DRUG WITHDRAWAL SYNDROME [None]
  - MUSCLE TWITCHING [None]
  - NAUSEA [None]
  - PARAESTHESIA [None]
